FAERS Safety Report 10171523 (Version 2)
Quarter: 2014Q2

REPORT INFORMATION
  Report Type: Spontaneous
  Country: US (occurrence: US)
  Receive Date: 20140514
  Receipt Date: 20140521
  Transmission Date: 20141212
  Serious: Yes (Hospitalization)
  Sender: FDA-Public Use
  Company Number: US-ABBVIE-14P-163-1235241-00

PATIENT
  Age: 66 Year
  Sex: Male

DRUGS (4)
  1. CREON [Suspect]
     Indication: PANCREATIC CARCINOMA
     Dosage: 2 CAPSULES BEFORE MEALS + 1 CAPSULE BEFORE SNACKS
     Route: 048
     Dates: start: 201302
  2. DURAGESIC [Concomitant]
     Indication: PRODUCT USED FOR UNKNOWN INDICATION
  3. MIRALAX [Concomitant]
     Indication: PRODUCT USED FOR UNKNOWN INDICATION
  4. ZOFRAN [Concomitant]
     Indication: PRODUCT USED FOR UNKNOWN INDICATION

REACTIONS (3)
  - Bacteraemia [Unknown]
  - Bile duct obstruction [Unknown]
  - Abdominal pain [Unknown]
